FAERS Safety Report 16126358 (Version 4)
Quarter: 2020Q1

REPORT INFORMATION
  Report Type: Report from Study
  Country: CN (occurrence: CN)
  Receive Date: 20190328
  Receipt Date: 20200218
  Transmission Date: 20200409
  Serious: Yes (Hospitalization)
  Sender: FDA-Public Use
  Company Number: CN-ROCHE-2271925

PATIENT
  Age: 29 Year
  Sex: Female
  Weight: 36 kg

DRUGS (7)
  1. PREDNISONE. [Concomitant]
     Active Substance: PREDNISONE
     Indication: RHEUMATOID ARTHRITIS
     Route: 048
     Dates: start: 20180510
  2. CALCITRIOL. [Concomitant]
     Active Substance: CALCITRIOL
     Route: 065
     Dates: start: 20180510
  3. MOBIC [Concomitant]
     Active Substance: MELOXICAM
     Indication: RHEUMATOID ARTHRITIS
     Route: 048
     Dates: start: 20180510, end: 20190923
  4. PLACEBO [Suspect]
     Active Substance: UNSPECIFIED INGREDIENT
     Indication: ADENOCARCINOMA GASTRIC
     Dosage: ON 15/FEB/2019, PATIENT RECEIVED MOST RECENT DOSE OF BLINDED METHOTREXATE?ON 01/FEB/2019, PATIENT RE
     Route: 048
     Dates: start: 20181005
  5. FOLIC ACID. [Concomitant]
     Active Substance: FOLIC ACID
     Route: 065
     Dates: start: 20180510
  6. TOCILIZUMAB. [Suspect]
     Active Substance: TOCILIZUMAB
     Indication: ADENOCARCINOMA GASTRIC
     Dosage: ON 14/FEB/2019, PATIENT RECEIVED MOST RECENT DOSE OF BLINDED TOCILIZUMAB.?ON 01/FEB/2019, PATIENT RE
     Route: 065
     Dates: start: 20180929
  7. CALCIUM CARBONATE. [Concomitant]
     Active Substance: CALCIUM CARBONATE
     Route: 065
     Dates: start: 20180510

REACTIONS (1)
  - Asthma [Recovered/Resolved]

NARRATIVE: CASE EVENT DATE: 20190201
